FAERS Safety Report 17347241 (Version 1)
Quarter: 2020Q1

REPORT INFORMATION
  Report Type: Spontaneous
  Country: CH (occurrence: CH)
  Receive Date: 20200130
  Receipt Date: 20200130
  Transmission Date: 20200409
  Serious: Yes (Hospitalization, Disabling, Congenital Anomaly, Other)
  Sender: FDA-Public Use
  Company Number: CH-GLAXOSMITHKLINE-CH2020012716

PATIENT
  Age: 0 Year
  Sex: Female

DRUGS (2)
  1. LAMICTAL [Suspect]
     Active Substance: LAMOTRIGINE
     Indication: EPILEPSY
     Dosage: SINCE UNKNOWN DATE, HOWEVER DURING PREGNANCY UNTIL AFTER BIRTH (FURTHER COURSE
     Route: 048
  2. DEPAKINE [Suspect]
     Active Substance: VALPROATE SODIUM
     Indication: EPILEPSY
     Dosage: EXPOSURE THROUGHOUT PREGNANCY
     Route: 048
     Dates: start: 1990

REACTIONS (7)
  - Atrial septal defect [Recovered/Resolved with Sequelae]
  - Psychomotor skills impaired [Not Recovered/Not Resolved]
  - Strabismus [Not Recovered/Not Resolved]
  - Foetal anticonvulsant syndrome [Not Recovered/Not Resolved]
  - Foetal exposure during pregnancy [Not Recovered/Not Resolved]
  - Prognathism [Recovered/Resolved with Sequelae]
  - Cognitive disorder [Not Recovered/Not Resolved]

NARRATIVE: CASE EVENT DATE: 1997
